FAERS Safety Report 7107945-2 (Version None)
Quarter: 2010Q4

REPORT INFORMATION
  Report Type: 
  Country: None (occurrence: None)
  Receive Date: 20101117
  Receipt Date: 20101102
  Transmission Date: 20110411
  Serious: Yes (Death)
  Sender: FDA-Public Use
  Company Number: JP-ALLERGAN-1014684US

PATIENT
  Age: 76 Year
  Sex: Female

DRUGS (6)
  1. LUMIGAN [Suspect]
     Indication: GLAUCOMA
     Dosage: 1 GTT, QD
     Route: 047
     Dates: start: 20100713, end: 20100725
  2. BROMFENAC SODIUM [Suspect]
     Indication: CATARACT OPERATION COMPLICATION
     Dosage: 1 GTT, BID
     Route: 047
     Dates: start: 20100614, end: 20100725
  3. MOXIFLOXACIN HCL [Suspect]
     Indication: CATARACT OPERATION COMPLICATION
     Dosage: 1 GTT, QID
     Route: 047
     Dates: start: 20100611, end: 20100725
  4. RINDERON                           /00008501/ [Suspect]
     Indication: CATARACT OPERATION COMPLICATION
     Dosage: 1 GTT, QID
     Route: 047
     Dates: start: 20100614, end: 20100725
  5. FLOMOX [Suspect]
     Indication: CATARACT OPERATION COMPLICATION
     Dosage: 1 DF, TID
     Route: 048
     Dates: start: 20100614, end: 20100615
  6. FLOMOX [Suspect]
     Dosage: 1 DF, TID
     Route: 048
     Dates: start: 20100620, end: 20100621

REACTIONS (2)
  - CARDIAC ARREST [None]
  - POST PROCEDURAL COMPLICATION [None]
